FAERS Safety Report 11371040 (Version 1)
Quarter: 2015Q3

REPORT INFORMATION
  Report Type: Spontaneous
  Country: RS (occurrence: RS)
  Receive Date: 20150812
  Receipt Date: 20150812
  Transmission Date: 20151125
  Serious: Yes (Death)
  Sender: FDA-Public Use
  Company Number: RS-ROXANE LABORATORIES, INC.-2015-RO-01305RO

PATIENT
  Age: 28 Year
  Sex: Male

DRUGS (3)
  1. DIAZEPAM. [Suspect]
     Active Substance: DIAZEPAM
     Indication: DETOXIFICATION
     Dosage: 30 MG
     Route: 065
  2. METHADONE [Suspect]
     Active Substance: METHADONE HYDROCHLORIDE
     Indication: DRUG DEPENDENCE
     Dosage: 20 MG
     Route: 065
  3. CLOZAPINE. [Suspect]
     Active Substance: CLOZAPINE
     Indication: DETOXIFICATION
     Dosage: 25 MG
     Route: 065

REACTIONS (2)
  - Cardiotoxicity [Fatal]
  - Death [Fatal]
